FAERS Safety Report 14537564 (Version 5)
Quarter: 2018Q1

REPORT INFORMATION
  Report Type: Spontaneous
  Country: TR (occurrence: TR)
  Receive Date: 20180215
  Receipt Date: 20180301
  Transmission Date: 20180509
  Serious: Yes (Other)
  Sender: FDA-Public Use
  Company Number: TR-BRISTOL-MYERS SQUIBB COMPANY-BMS-2018-009987

PATIENT
  Age: 60 Year
  Sex: Male

DRUGS (1)
  1. YERVOY [Suspect]
     Active Substance: IPILIMUMAB
     Indication: MALIGNANT MELANOMA
     Dosage: 4 DOSES TOTAL
     Route: 065

REACTIONS (5)
  - Pain [Unknown]
  - Diarrhoea [Unknown]
  - Blindness [Recovering/Resolving]
  - Back pain [Unknown]
  - Periorbital oedema [Unknown]
